FAERS Safety Report 4779979-4 (Version None)
Quarter: 2005Q3

REPORT INFORMATION
  Report Type: 
  Country: None (occurrence: None)
  Receive Date: 20050914
  Receipt Date: 20050511
  Transmission Date: 20060218
  Serious: Yes (Hospitalization)
  Sender: FDA-Public Use
  Company Number: 163-20785-05050217

PATIENT
  Age: 43 Year
  Sex: Female

DRUGS (2)
  1. THALOMID [Suspect]
     Indication: MULTIPLE MYELOMA
     Dosage: 150 MG, DAILY, ORAL
     Route: 048
     Dates: start: 20050324, end: 20050501
  2. VELCADE (BORTEZOMIB) [Concomitant]

REACTIONS (4)
  - BLOOD CALCIUM INCREASED [None]
  - DEHYDRATION [None]
  - DISEASE PROGRESSION [None]
  - PANCREATITIS [None]
